FAERS Safety Report 9843720 (Version 1)
Quarter: 2014Q1

REPORT INFORMATION
  Report Type: Spontaneous
  Country: US (occurrence: US)
  Receive Date: 20140126
  Receipt Date: 20140126
  Transmission Date: 20141002
  Serious: No
  Sender: FDA-Public Use
  Company Number: US-009507513-1401USA010939

PATIENT
  Age: 16 Year
  Sex: Female

DRUGS (1)
  1. NEXPLANON [Suspect]
     Route: 059

REACTIONS (4)
  - Weight increased [Unknown]
  - Alopecia [Unknown]
  - Menstrual disorder [Unknown]
  - Product quality issue [Unknown]
